FAERS Safety Report 16838810 (Version 1)
Quarter: 2019Q4

REPORT INFORMATION
  Report Type: Spontaneous
  Country: US (occurrence: US)
  Receive Date: 20190920
  Receipt Date: 20190920
  Transmission Date: 20200122
  Serious: No
  Sender: FDA-Public Use
  Company Number: None

PATIENT
  Age: 53 Year
  Sex: Female
  Weight: 78.75 kg

DRUGS (6)
  1. BABY ASPIRIN [Concomitant]
     Active Substance: ASPIRIN
  2. METFORMIN [Concomitant]
     Active Substance: METFORMIN HYDROCHLORIDE
  3. IBUPROFEN. [Concomitant]
     Active Substance: IBUPROFEN
  4. ZANTAC [Suspect]
     Active Substance: RANITIDINE HYDROCHLORIDE
     Indication: DYSPEPSIA
     Dosage: ?          QUANTITY:1 CAPSULE(S);?
     Route: 048
     Dates: start: 20180901, end: 20190920
  5. TUMS [Concomitant]
     Active Substance: CALCIUM CARBONATE
  6. ONE A DAY MULTI VITAMIN [Concomitant]

REACTIONS (3)
  - Abdominal pain upper [None]
  - Vomiting [None]
  - Diarrhoea [None]
